FAERS Safety Report 14028290 (Version 1)
Quarter: 2017Q4

REPORT INFORMATION
  Report Type: Spontaneous
  Country: US (occurrence: US)
  Receive Date: 20171001
  Receipt Date: 20171001
  Transmission Date: 20180321
  Serious: Yes (Disabling, Other)
  Sender: FDA-Public Use
  Company Number: None

PATIENT
  Age: 56 Year
  Sex: Female
  Weight: 81.9 kg

DRUGS (8)
  1. KERYDIN [Suspect]
     Active Substance: TAVABOROLE
     Indication: ONYCHOMYCOSIS
     Dosage: QUANTITY:1 10 ML VIAL;OTHER ROUTE:APPLIED TO AFFECTED TOENAILS  FOR 48WKS.?
     Dates: start: 20161011, end: 20170505
  2. SYNTHROID ACEON [Concomitant]
  3. ASA [Concomitant]
     Active Substance: ASPIRIN
  4. VITAMIN D [Concomitant]
     Active Substance: CHOLECALCIFEROL
  5. TUMERIC [Concomitant]
     Active Substance: HERBALS\TURMERIC
  6. HAIR VITAMIN [Concomitant]
  7. ESTRADIOL. [Concomitant]
     Active Substance: ESTRADIOL
  8. BIOTIN [Concomitant]
     Active Substance: BIOTIN

REACTIONS (3)
  - Gait disturbance [None]
  - Ingrowing nail [None]
  - Depressed mood [None]

NARRATIVE: CASE EVENT DATE: 20170505
